FAERS Safety Report 10770827 (Version 1)
Quarter: 2015Q1

REPORT INFORMATION
  Report Type: Spontaneous
  Country: FR (occurrence: FR)
  Receive Date: 20150206
  Receipt Date: 20150206
  Transmission Date: 20150721
  Serious: Yes (Death)
  Sender: FDA-Public Use
  Company Number: FR-INCYTE CORPORATION-2015IN000196

PATIENT
  Age: 59 Year
  Sex: Male

DRUGS (3)
  1. INC424 [Suspect]
     Active Substance: RUXOLITINIB
     Indication: MYELOFIBROSIS
     Route: 065
  2. INC424 [Suspect]
     Active Substance: RUXOLITINIB
     Indication: SPLENOMEGALY
  3. INC424 [Suspect]
     Active Substance: RUXOLITINIB
     Indication: NORMOCHROMIC NORMOCYTIC ANAEMIA

REACTIONS (4)
  - Cytopenia [Fatal]
  - Myeloproliferative disorder [Fatal]
  - Myelofibrosis [Fatal]
  - Drug ineffective [Unknown]
